FAERS Safety Report 10047929 (Version 2)
Quarter: 2014Q2

REPORT INFORMATION
  Report Type: Spontaneous
  Country: US (occurrence: US)
  Receive Date: 20140331
  Receipt Date: 20140402
  Transmission Date: 20141212
  Serious: No
  Sender: FDA-Public Use
  Company Number: US-009507513-1403USA008999

PATIENT
  Age: 84 Year
  Sex: Female

DRUGS (1)
  1. DULERA [Suspect]
     Indication: ASTHMA
     Dosage: 200/5 MICROGRAM, 2 PUFF TWICE PER DAY
     Route: 055
     Dates: start: 20140304

REACTIONS (2)
  - Dysphonia [Not Recovered/Not Resolved]
  - Drug dose omission [Unknown]
